FAERS Safety Report 18559141 (Version 3)
Quarter: 2020Q4

REPORT INFORMATION
  Report Type: Report from Study
  Country: None (occurrence: NL)
  Receive Date: 20201130
  Receipt Date: 20201203
  Transmission Date: 20210114
  Serious: Yes (Death, Life-Threatening, Hospitalization, Other)
  Sender: FDA-Public Use
  Company Number: NL-ABBVIE-20K-114-3647508-00

PATIENT
  Sex: Female

DRUGS (4)
  1. DUODOPA [Suspect]
     Active Substance: CARBIDOPA\LEVODOPA
  2. SIFROL [Concomitant]
     Active Substance: PRAMIPEXOLE
     Indication: PARKINSON^S DISEASE
     Dosage: ONCE PER DAY IN THE EVENING.
  3. RIVASTIGMINE. [Concomitant]
     Active Substance: RIVASTIGMINE
     Indication: HALLUCINATION
     Dosage: 24 HOURS
     Route: 062
     Dates: start: 20200327
  4. DUODOPA [Suspect]
     Active Substance: CARBIDOPA\LEVODOPA
     Indication: PARKINSON^S DISEASE
     Dosage: MD 11.0 ML, CD 5.5 ML/H, ED 1.7 ML, CND 3.5 ML/H, END 1.7 ML.
     Route: 050
     Dates: start: 20150325

REACTIONS (6)
  - Renal failure [Fatal]
  - Illness [Unknown]
  - General physical health deterioration [Not Recovered/Not Resolved]
  - Rehabilitation therapy [Not Recovered/Not Resolved]
  - Malaise [Not Recovered/Not Resolved]
  - Coronavirus test positive [Not Recovered/Not Resolved]

NARRATIVE: CASE EVENT DATE: 2020
